FAERS Safety Report 7602021-4 (Version None)
Quarter: 2011Q3

REPORT INFORMATION
  Report Type: 
  Country: None (occurrence: None)
  Receive Date: 20110711
  Receipt Date: 20110614
  Transmission Date: 20111222
  Serious: Yes (Other)
  Sender: FDA-Public Use
  Company Number: US-BAXTER-2011BH015051

PATIENT
  Sex: Female

DRUGS (1)
  1. TISSEEL VH [Suspect]
     Indication: LYMPHORRHOEA
     Route: 065

REACTIONS (1)
  - SMALL INTESTINAL OBSTRUCTION [None]
